FAERS Safety Report 5064565-1 (Version None)
Quarter: 2006Q3

REPORT INFORMATION
  Report Type: 
  Country: None (occurrence: None)
  Receive Date: 20060726
  Receipt Date: 20060712
  Transmission Date: 20061208
  Serious: Yes (Hospitalization, Other)
  Sender: FDA-Public Use
  Company Number: 2006087247

PATIENT
  Sex: Female
  Weight: 78.0187 kg

DRUGS (4)
  1. AROMASIN [Suspect]
     Indication: BREAST CANCER
     Dosage: 25 MG (25 MG,1 IN 1 D)
  2. NORVASC [Concomitant]
  3. TAMOXIFEN CITRATE [Concomitant]
  4. PROPRANOLOL [Concomitant]

REACTIONS (8)
  - BLOOD POTASSIUM DECREASED [None]
  - BLOOD SODIUM DECREASED [None]
  - BODY TEMPERATURE INCREASED [None]
  - DELIRIUM [None]
  - FALL [None]
  - HYPERTENSION [None]
  - HYPOTRICHOSIS [None]
  - LOSS OF CONSCIOUSNESS [None]
